FAERS Safety Report 19098702 (Version 1)
Quarter: 2021Q2

REPORT INFORMATION
  Report Type: Spontaneous
  Country: US (occurrence: US)
  Receive Date: 20210406
  Receipt Date: 20210406
  Transmission Date: 20210717
  Serious: No
  Sender: FDA-Public Use
  Company Number: US-ORGANON-O2104USA000405

PATIENT
  Sex: Female

DRUGS (2)
  1. NEXPLANON [Suspect]
     Active Substance: ETONOGESTREL
     Dosage: 1 DOSAGE FORM (68 MILLIGRAM), EVERY 3 YEARS
     Route: 059
  2. ACCUTANE [Concomitant]
     Active Substance: ISOTRETINOIN
     Dosage: UNK
     Dates: start: 202012

REACTIONS (1)
  - Liver function test abnormal [Unknown]
